FAERS Safety Report 7292883-5 (Version None)
Quarter: 2011Q1

REPORT INFORMATION
  Report Type: 
  Country: None (occurrence: None)
  Receive Date: 20110215
  Receipt Date: 20110203
  Transmission Date: 20110831
  Serious: Yes (Other)
  Sender: FDA-Public Use
  Company Number: PHHY2011PL09598

PATIENT

DRUGS (1)
  1. GILENYA [Suspect]

REACTIONS (2)
  - SKIN CANCER [None]
  - LIVER INJURY [None]
